FAERS Safety Report 15385025 (Version 1)
Quarter: 2018Q3

REPORT INFORMATION
  Report Type: Report from Study
  Country: ES (occurrence: ES)
  Receive Date: 20180914
  Receipt Date: 20180914
  Transmission Date: 20181010
  Serious: Yes (Other)
  Sender: FDA-Public Use
  Company Number: ES-TEVA-2018-ES-954693

PATIENT
  Age: 41 Year
  Sex: Female

DRUGS (1)
  1. COPAXONE [Suspect]
     Active Substance: GLATIRAMER ACETATE
     Indication: RELAPSING-REMITTING MULTIPLE SCLEROSIS
     Route: 058
     Dates: start: 20150918

REACTIONS (3)
  - Wrong technique in device usage process [Unknown]
  - Injection site scab [Not Recovered/Not Resolved]
  - Injection site necrosis [Recovered/Resolved]

NARRATIVE: CASE EVENT DATE: 201808
